FAERS Safety Report 5759680-0 (Version None)
Quarter: 2008Q2

REPORT INFORMATION
  Report Type: 
  Country: None (occurrence: None)
  Receive Date: 20080605
  Receipt Date: 20080520
  Transmission Date: 20081010
  Serious: Yes (Hospitalization, Congenital Anomaly)
  Sender: FDA-Public Use
  Company Number: A0680189A

PATIENT
  Sex: Male
  Weight: 3 kg

DRUGS (3)
  1. PAXIL [Suspect]
     Indication: DEPRESSION
     Dosage: 10MG TWICE PER DAY
     Dates: start: 19950101, end: 19951201
  2. VITAMIN TAB [Concomitant]
  3. ZOLOFT [Concomitant]
     Dosage: 1TAB THREE TIMES PER DAY
     Dates: start: 19950101

REACTIONS (6)
  - CARDIAC MURMUR [None]
  - DRUG EXPOSURE DURING PREGNANCY [None]
  - PERSISTENT FOETAL CIRCULATION [None]
  - PLEURAL EFFUSION [None]
  - TRICUSPID VALVE INCOMPETENCE [None]
  - VENTRICULAR SEPTAL DEFECT [None]
